FAERS Safety Report 18305759 (Version 1)
Quarter: 2020Q3

REPORT INFORMATION
  Report Type: Spontaneous
  Country: US (occurrence: US)
  Receive Date: 20200923
  Receipt Date: 20200923
  Transmission Date: 20201103
  Serious: Yes (Other)
  Sender: FDA-Public Use
  Company Number: US-ANIPHARMA-2020-US-017668

PATIENT
  Sex: Male

DRUGS (14)
  1. TIOTROPIUM INHALER [Concomitant]
     Active Substance: TIOTROPIUM
  2. SACUBITRIL + VALSARTAN [Concomitant]
  3. FINASTERIDE. [Concomitant]
     Active Substance: FINASTERIDE
  4. NICOTINE TRANSDERMAL SYSTEM [Concomitant]
     Active Substance: NICOTINE
  5. SPIRONOLACTONE. [Concomitant]
     Active Substance: SPIRONOLACTONE
  6. BUDESONIDE + FORMOTEROL INHALER [Concomitant]
  7. ASPIRIN. [Concomitant]
     Active Substance: ASPIRIN
  8. CLOPIDOGREL [Concomitant]
     Active Substance: CLOPIDOGREL BISULFATE
  9. DULOXETINE. [Suspect]
     Active Substance: DULOXETINE
     Indication: PRODUCT USED FOR UNKNOWN INDICATION
     Dosage: 120 MG DAILY
  10. AMIODARONE [Concomitant]
     Active Substance: AMIODARONE
     Dosage: 120MG/DAY
  11. WARFARIN [Concomitant]
     Active Substance: WARFARIN
  12. MEXILETINE HYDROCHLORIDE (NON?SPECIFIC) [Suspect]
     Active Substance: MEXILETINE HYDROCHLORIDE
     Indication: VENTRICULAR TACHYCARDIA
  13. CARVEDILOL. [Concomitant]
     Active Substance: CARVEDILOL
  14. DIGOXIN. [Concomitant]
     Active Substance: DIGOXIN

REACTIONS (2)
  - Myoclonus [Unknown]
  - Drug interaction [Unknown]
